FAERS Safety Report 26176950 (Version 1)
Quarter: 2025Q4

REPORT INFORMATION
  Report Type: Report from Study
  Country: US (occurrence: US)
  Receive Date: 20251218
  Receipt Date: 20251218
  Transmission Date: 20260117
  Serious: Yes (Hospitalization, Other)
  Sender: ABBVIE
  Company Number: US-ABBVIE-6595681

PATIENT
  Age: 39 Year
  Sex: Female

DRUGS (3)
  1. CREON [Suspect]
     Active Substance: PANCRELIPASE AMYLASE\PANCRELIPASE LIPASE\PANCRELIPASE PROTEASE
     Indication: Product used for unknown indication
     Route: 048
     Dates: start: 20251127
  2. CREON [Suspect]
     Active Substance: PANCRELIPASE AMYLASE\PANCRELIPASE LIPASE\PANCRELIPASE PROTEASE
     Indication: Product used for unknown indication
     Dosage: LAST ADMIN DATE 2025
     Route: 048
     Dates: start: 202507
  3. MIDODRINE [Concomitant]
     Active Substance: MIDODRINE
     Indication: Product used for unknown indication
     Dosage: DOSE INCREASED

REACTIONS (10)
  - Cryptosporidiosis infection [Unknown]
  - Weight decreased [Unknown]
  - Flatulence [Unknown]
  - Blood pressure decreased [Unknown]
  - Fall [Unknown]
  - Rib fracture [Unknown]
  - Loss of consciousness [Recovering/Resolving]
  - Investigation abnormal [Unknown]
  - Drug ineffective [Not Recovered/Not Resolved]
  - Illness [Unknown]

NARRATIVE: CASE EVENT DATE: 20250101
